FAERS Safety Report 9202004 (Version 1)
Quarter: 2013Q1

REPORT INFORMATION
  Report Type: Spontaneous
  Country: US (occurrence: None)
  Receive Date: 20130328
  Receipt Date: 20130328
  Transmission Date: 20140127
  Serious: Yes (Other)
  Sender: FDA-Public Use
  Company Number: US-DEXPHARM-20130117

PATIENT
  Age: 82 Year
  Sex: Male

DRUGS (7)
  1. OMEPRAZOLE [Suspect]
     Indication: HELICOBACTER INFECTION
  2. CLARITHROMYCIN [Suspect]
     Indication: HELICOBACTER INFECTION
  3. INSULIN DETEMIR [Suspect]
     Indication: TYPE 2 DIABETES MELLITUS
  4. AMOXICILLIN [Suspect]
     Indication: HELICOBACTER INFECTION
  5. INSULIN DETEMIR [Suspect]
     Indication: TYPE 2 DIABETES MELLITUS
  6. INSULIN DETEMIR [Suspect]
     Indication: TYPE 2 DIABETES MELLITUS
  7. INSULIN ASPART [Concomitant]

REACTIONS (5)
  - Anaemia [None]
  - Helicobacter test positive [None]
  - Hypoglycaemia [None]
  - Drug dose omission [None]
  - Drug interaction [None]
